FAERS Safety Report 18285877 (Version 1)
Quarter: 2020Q3

REPORT INFORMATION
  Report Type: Spontaneous
  Country: GB (occurrence: GB)
  Receive Date: 20200919
  Receipt Date: 20200919
  Transmission Date: 20201103
  Serious: Yes (Hospitalization)
  Sender: FDA-Public Use
  Company Number: GB-ACCORD-201531

PATIENT
  Age: 70 Year
  Sex: Male
  Weight: 95 kg

DRUGS (18)
  1. SALBUTAMOL [Concomitant]
     Active Substance: ALBUTEROL
  2. ACETYLSALICYLIC ACID [Concomitant]
     Active Substance: ASPIRIN
  3. CODEINE [Concomitant]
     Active Substance: CODEINE
  4. FUROSEMIDE. [Concomitant]
     Active Substance: FUROSEMIDE
  5. CETIRIZINE [Concomitant]
     Active Substance: CETIRIZINE HYDROCHLORIDE
  6. KETOCONAZOLE. [Concomitant]
     Active Substance: KETOCONAZOLE
  7. RAMIPRIL. [Concomitant]
     Active Substance: RAMIPRIL
  8. GLYCERYL TRINITRATE [Concomitant]
     Active Substance: NITROGLYCERIN
  9. IRON [Concomitant]
     Active Substance: IRON
  10. FINASTERIDE. [Concomitant]
     Active Substance: FINASTERIDE
  11. ISOSORBIDE. [Concomitant]
     Active Substance: ISOSORBIDE
  12. EZETIMIBE. [Concomitant]
     Active Substance: EZETIMIBE
  13. PARACETAMOL [Concomitant]
     Active Substance: ACETAMINOPHEN
  14. BISOPROLOL [Concomitant]
     Active Substance: BISOPROLOL
  15. SPIRONOLACTONE. [Concomitant]
     Active Substance: SPIRONOLACTONE
  16. ATORVASTATIN [Concomitant]
     Active Substance: ATORVASTATIN
  17. TRIMBOW [Concomitant]
     Active Substance: BECLOMETHASONE DIPROPIONATE\FORMOTEROL FUMARATE\GLYCOPYRROLATE
  18. ALLOPURINOL. [Suspect]
     Active Substance: ALLOPURINOL
     Indication: GOUT
     Route: 048

REACTIONS (8)
  - Mouth ulceration [Unknown]
  - Stevens-Johnson syndrome [Unknown]
  - Acute kidney injury [Recovering/Resolving]
  - Drug reaction with eosinophilia and systemic symptoms [Unknown]
  - Liver function test abnormal [Unknown]
  - Scab [Unknown]
  - Pallor [Unknown]
  - Rash maculo-papular [Unknown]
